FAERS Safety Report 9559905 (Version 1)
Quarter: 2013Q3

REPORT INFORMATION
  Report Type: Spontaneous
  Country: US (occurrence: US)
  Receive Date: 20130927
  Receipt Date: 20130927
  Transmission Date: 20140515
  Serious: No
  Sender: FDA-Public Use
  Company Number: US-PFIZER INC-2013278238

PATIENT
  Age: 55 Year
  Sex: Male
  Weight: 84.81 kg

DRUGS (4)
  1. GABAPENTIN [Suspect]
     Indication: RESTLESS LEGS SYNDROME
     Dosage: UNK
  2. REQUIP [Suspect]
     Indication: RESTLESS LEGS SYNDROME
     Dosage: UNK
  3. PROGRAF [Concomitant]
     Indication: CROHN^S DISEASE
     Dosage: UNK, 2X/DAY
  4. LEVOTHYROXINE [Concomitant]
     Indication: THYROID DISORDER
     Dosage: 1 MG, 1X/DAY

REACTIONS (2)
  - Off label use [Unknown]
  - Drug ineffective for unapproved indication [Unknown]
